FAERS Safety Report 17995936 (Version 2)
Quarter: 2020Q3

REPORT INFORMATION
  Report Type: Spontaneous
  Country: US (occurrence: US)
  Receive Date: 20200708
  Receipt Date: 20200724
  Transmission Date: 20201103
  Serious: No
  Sender: FDA-Public Use
  Company Number: US-VERTEX PHARMACEUTICALS-2020-014285

PATIENT
  Age: 15 Year
  Sex: Male

DRUGS (7)
  1. ZANTAC [Concomitant]
     Active Substance: RANITIDINE HYDROCHLORIDE
  2. TRIKAFTA [Suspect]
     Active Substance: ELEXACAFTOR\IVACAFTOR\TEZACAFTOR
     Indication: CYSTIC FIBROSIS
     Dosage: 100 MG ELEXACAFTOR/ 50 MG TEZACAFTOR/ 75 MG IVACAFTOR; 150MG IVACAFTOR, BID
     Route: 048
     Dates: start: 20200710
  3. ALBUTEROL. [Concomitant]
     Active Substance: ALBUTEROL
  4. PREVACID [Concomitant]
     Active Substance: LANSOPRAZOLE
  5. CREON [Concomitant]
     Active Substance: PANCRELIPASE AMYLASE\PANCRELIPASE LIPASE\PANCRELIPASE PROTEASE
  6. PULMOZYME [Concomitant]
     Active Substance: DORNASE ALFA
  7. FLOVENT [Concomitant]
     Active Substance: FLUTICASONE PROPIONATE

REACTIONS (1)
  - Rash pruritic [Not Recovered/Not Resolved]

NARRATIVE: CASE EVENT DATE: 20200719
